FAERS Safety Report 8786539 (Version 2)
Quarter: 2012Q4

REPORT INFORMATION
  Report Type: Report from Study
  Country: AU (occurrence: AU)
  Receive Date: 20120914
  Receipt Date: 20120927
  Transmission Date: 20130627
  Serious: Yes (Other)
  Sender: FDA-Public Use
  Company Number: AU-JNJFOC-20120903996

PATIENT
  Sex: Female
  Weight: 97 kg

DRUGS (13)
  1. STELARA [Suspect]
     Indication: PSORIASIS
     Route: 058
     Dates: start: 20120318
  2. STELARA [Suspect]
     Indication: PSORIASIS
     Route: 058
     Dates: start: 20120901
  3. STELARA [Suspect]
     Indication: PSORIASIS
     Route: 058
     Dates: start: 20111225
  4. STELARA [Suspect]
     Indication: PSORIASIS
     Route: 058
     Dates: start: 20111002
  5. STELARA [Suspect]
     Indication: PSORIASIS
     Route: 058
     Dates: start: 20110710
  6. STELARA [Suspect]
     Indication: PSORIASIS
     Route: 058
     Dates: start: 20110417
  7. STELARA [Suspect]
     Indication: PSORIASIS
     Route: 058
     Dates: start: 20110123
  8. STELARA [Suspect]
     Indication: PSORIASIS
     Route: 058
     Dates: start: 20101226
  9. STELARA [Suspect]
     Indication: PSORIASIS
     Route: 058
     Dates: start: 20120610
  10. DIFORMIN [Concomitant]
  11. GLYADE [Concomitant]
  12. CELEBREX [Concomitant]
  13. ANTIHYPERTENSIVES [Concomitant]

REACTIONS (1)
  - Melanocytic naevus [Recovered/Resolved]
